FAERS Safety Report 21381996 (Version 2)
Quarter: 2022Q4

REPORT INFORMATION
  Report Type: Spontaneous
  Country: GB (occurrence: GB)
  Receive Date: 20220927
  Receipt Date: 20221026
  Transmission Date: 20230113
  Serious: Yes (Other)
  Sender: FDA-Public Use
  Company Number: GB-PFIZER INC-PV202200068925

PATIENT
  Age: 80 Year
  Sex: Male

DRUGS (1)
  1. GABAPENTIN [Suspect]
     Active Substance: GABAPENTIN
     Indication: Product used for unknown indication
     Dosage: 300 MILLIGRAM, BID, (2 CAPSULES TWICE DAILY)
     Route: 048

REACTIONS (3)
  - Arthropathy [Unknown]
  - Product dispensing error [Unknown]
  - Incorrect dosage administered [Unknown]
